FAERS Safety Report 9060650 (Version 1)
Quarter: 2013Q1

REPORT INFORMATION
  Report Type: Spontaneous
  Country: US (occurrence: US)
  Receive Date: 20130211
  Receipt Date: 20130211
  Transmission Date: 20140127
  Serious: Yes (Hospitalization)
  Sender: FDA-Public Use
  Company Number: US-B.I. PHARMACEUTICALS,INC./RIDGEFIELD-2013-BI-03435BP

PATIENT
  Sex: Male

DRUGS (10)
  1. SPIRIVA [Suspect]
     Indication: CHRONIC OBSTRUCTIVE PULMONARY DISEASE
     Dosage: 18 MCG
     Route: 055
     Dates: start: 20120717
  2. SPIRIVA [Suspect]
     Indication: BRONCHITIS CHRONIC
  3. AMLOPIDINE [Concomitant]
     Indication: HYPERTENSION
     Dosage: 5 MG
     Route: 048
  4. METOPROLOL [Concomitant]
     Indication: HYPERTENSION
     Dosage: 25 MG
     Route: 048
  5. HYDROCHLOROTHIAZIDE [Concomitant]
     Indication: HYPERTENSION
     Dosage: 50 MG
     Route: 048
  6. LISINOPRIL [Concomitant]
     Indication: BLOOD CHOLESTEROL INCREASED
     Dosage: 40 MG
     Route: 048
  7. ALBUTEROL [Concomitant]
     Indication: CHRONIC OBSTRUCTIVE PULMONARY DISEASE
     Route: 055
  8. ALLOPURINOL [Concomitant]
     Indication: GOUT
     Dosage: 300 MG
     Route: 048
  9. PROVASTATIN [Concomitant]
     Indication: BLOOD CHOLESTEROL INCREASED
  10. PROAIR [Concomitant]
     Route: 055

REACTIONS (2)
  - Coronary artery occlusion [Not Recovered/Not Resolved]
  - Aortic valve stenosis [Not Recovered/Not Resolved]
